FAERS Safety Report 26115960 (Version 1)
Quarter: 2025Q4

REPORT INFORMATION
  Report Type: Report from Study
  Country: US (occurrence: US)
  Receive Date: 20251203
  Receipt Date: 20251203
  Transmission Date: 20260117
  Serious: Yes (Other)
  Sender: JOHNSON AND JOHNSON
  Company Number: US-JNJFOC-20251173411

PATIENT

DRUGS (20)
  1. TALVEY [Suspect]
     Active Substance: TALQUETAMAB-TGVS
     Indication: Product used for unknown indication
     Dosage: DISPENSED DATE 10-APR-2023
  2. TALVEY [Suspect]
     Active Substance: TALQUETAMAB-TGVS
     Dosage: DISPENSED DATE 13-APR-2023
  3. TALVEY [Suspect]
     Active Substance: TALQUETAMAB-TGVS
     Dosage: DISPENSED DATE 16-APR-2023
  4. TALVEY [Suspect]
     Active Substance: TALQUETAMAB-TGVS
     Dosage: DISPENSED DATE 20-MAY-2024
  5. TALVEY [Suspect]
     Active Substance: TALQUETAMAB-TGVS
     Dosage: DISPENSED DATE 23-MAY-2024
  6. TALVEY [Suspect]
     Active Substance: TALQUETAMAB-TGVS
     Dosage: DISPENSED DATE 26-MAY-2024
  7. TALVEY [Suspect]
     Active Substance: TALQUETAMAB-TGVS
     Dosage: DISPENSED DATE 17-JUL-2024
  8. TALVEY [Suspect]
     Active Substance: TALQUETAMAB-TGVS
     Dosage: DISPENSED DATE 20-JUL-2024
  9. TALVEY [Suspect]
     Active Substance: TALQUETAMAB-TGVS
     Dosage: DISPENSED DATE 23-JUL-2024
  10. TALVEY [Suspect]
     Active Substance: TALQUETAMAB-TGVS
     Dosage: DISPENSED DATE 15-AUG-2024
  11. TALVEY [Suspect]
     Active Substance: TALQUETAMAB-TGVS
     Dosage: DISPENSED DATE 18-AUG-2024
  12. TALVEY [Suspect]
     Active Substance: TALQUETAMAB-TGVS
     Dosage: DISPENSED DATE 21-AUG-2024
  13. TALVEY [Suspect]
     Active Substance: TALQUETAMAB-TGVS
     Dosage: DISPENSED DATE 20-JUN-2025
  14. TALVEY [Suspect]
     Active Substance: TALQUETAMAB-TGVS
     Dosage: DISPENSED DATE 23-JUN-2025
  15. TALVEY [Suspect]
     Active Substance: TALQUETAMAB-TGVS
     Dosage: DISPENSED DATE 26-JUN-2025
  16. TALVEY [Suspect]
     Active Substance: TALQUETAMAB-TGVS
     Dosage: DISPENSED DATE 18-DEC-2023
  17. TALVEY [Suspect]
     Active Substance: TALQUETAMAB-TGVS
     Dosage: DISPENSED DATE 14-NOV-2025
  18. TALVEY [Suspect]
     Active Substance: TALQUETAMAB-TGVS
     Dosage: DISPENSED DATE 17-NOV-2025
  19. TALVEY [Suspect]
     Active Substance: TALQUETAMAB-TGVS
     Dosage: DISPENSED DATE 20-NOV-2025
  20. TALVEY [Suspect]
     Active Substance: TALQUETAMAB-TGVS
     Dosage: DISPENSED DATE 24-NOV-2025

REACTIONS (2)
  - Immune effector cell-associated neurotoxicity syndrome [Unknown]
  - Product dose omission issue [Unknown]

NARRATIVE: CASE EVENT DATE: 20231218
